FAERS Safety Report 23718410 (Version 2)
Quarter: 2024Q2

REPORT INFORMATION
  Report Type: Report from Study
  Country: NZ (occurrence: NZ)
  Receive Date: 20240408
  Receipt Date: 20240412
  Transmission Date: 20240716
  Serious: No
  Sender: FDA-Public Use
  Company Number: NZ-PFIZER INC-PV202400043914

PATIENT
  Age: 3 Year
  Sex: Male
  Weight: 16.4 kg

DRUGS (1)
  1. LORLATINIB [Suspect]
     Active Substance: LORLATINIB
     Indication: Neuroblastoma
     Dosage: 65 MG, 1X/DAY (OD), NASOGASTRIC (NG)
     Dates: start: 20230707

REACTIONS (2)
  - Oedema [Not Recovered/Not Resolved]
  - Behaviour disorder [Not Recovered/Not Resolved]

NARRATIVE: CASE EVENT DATE: 20240322
